FAERS Safety Report 8974217 (Version 1)
Quarter: 2012Q4

REPORT INFORMATION
  Report Type: Spontaneous
  Country: CN (occurrence: None)
  Receive Date: 20121211
  Receipt Date: 20121211
  Transmission Date: 20130627
  Serious: Yes (Other)
  Sender: FDA-Public Use
  Company Number: VAL_01168_2012

PATIENT
  Age: 77 Year
  Sex: Female
  Weight: 32 kg

DRUGS (1)
  1. LOTENSIN [Suspect]
     Indication: HYPERTENSION
     Route: 048
     Dates: start: 20101030, end: 20101103

REACTIONS (4)
  - Cough [None]
  - Dyspnoea [None]
  - Palpitations [None]
  - Left ventricular failure [None]
